FAERS Safety Report 10483761 (Version 1)
Quarter: 2014Q3

REPORT INFORMATION
  Report Type: Spontaneous
  Country: GB (occurrence: None)
  Receive Date: 20140926
  Receipt Date: 20140926
  Transmission Date: 20150326
  Serious: Yes (Hospitalization)
  Sender: FDA-Public Use
  Company Number: GB-DEXPHARM-20140620

PATIENT
  Age: 69 Year
  Sex: Female

DRUGS (3)
  1. OMPERAZOLE [Suspect]
     Active Substance: OMEPRAZOLE
     Indication: HIATUS HERNIA
     Route: 048
     Dates: start: 200805, end: 201404
  2. SALBUTAMOL [Concomitant]
     Active Substance: ALBUTEROL
  3. SERETIDE [Concomitant]
     Active Substance: FLUTICASONE FUROATE\SALMETEROL XINAFOATE

REACTIONS (3)
  - Arrhythmia [None]
  - Atrial fibrillation [None]
  - Tachycardia [None]

NARRATIVE: CASE EVENT DATE: 201309
